FAERS Safety Report 13598196 (Version 2)
Quarter: 2017Q3

REPORT INFORMATION
  Report Type: Spontaneous
  Country: GB (occurrence: GB)
  Receive Date: 20170531
  Receipt Date: 20170804
  Transmission Date: 20171127
  Serious: Yes (Death, Other)
  Sender: FDA-Public Use
  Company Number: GB-TEVA-771693ACC

PATIENT
  Age: 95 Year
  Sex: Male
  Weight: 62.5 kg

DRUGS (13)
  1. DECAPEPTYL SR [Concomitant]
     Active Substance: TRIPTORELIN
     Indication: HORMONE THERAPY
     Dates: start: 20160405, end: 20170117
  2. LOPERAMIDE [Concomitant]
     Active Substance: LOPERAMIDE
     Indication: ANAL INCONTINENCE
     Dosage: 2 MILLIGRAM DAILY;
     Route: 048
     Dates: start: 20170228, end: 20170302
  3. GLYCERINE [Concomitant]
     Active Substance: GLYCERIN
     Indication: ANAL INCONTINENCE
     Dosage: 1 DOSAGE FORMS DAILY;
     Dates: start: 20170302, end: 20170303
  4. PARACETAMOL [Concomitant]
     Active Substance: ACETAMINOPHEN
     Indication: PAIN MANAGEMENT
     Dates: start: 20150417, end: 20170317
  5. DEXAMETASONE [Suspect]
     Active Substance: DEXAMETHASONE
     Indication: PROSTATE CANCER METASTATIC
     Dosage: 500 MICROGRAM DAILY;
     Route: 048
     Dates: start: 20160713, end: 20170317
  6. PANTOPRAZOLE [Concomitant]
     Active Substance: PANTOPRAZOLE
     Indication: GASTROINTESTINAL HAEMORRHAGE
     Route: 042
     Dates: start: 20170318, end: 20170318
  7. METRONIDAZOLE. [Concomitant]
     Active Substance: METRONIDAZOLE
     Indication: PNEUMONIA ASPIRATION
     Dosage: 1500 MILLIGRAM DAILY;
     Route: 042
     Dates: start: 20170318, end: 20170318
  8. ORAMORPH [Concomitant]
     Active Substance: MORPHINE SULFATE
     Indication: DYSPNOEA
     Dosage: 5 MILLIGRAM DAILY; 10MG/5ML PREPARATION
     Dates: start: 20170318, end: 20170318
  9. AMOXICILLIN. [Concomitant]
     Active Substance: AMOXICILLIN
     Indication: LOWER RESPIRATORY TRACT INFECTION
     Dosage: 3 MILLIGRAM DAILY;
     Dates: start: 20170318, end: 20170318
  10. CLARITHROMYCIN. [Concomitant]
     Active Substance: CLARITHROMYCIN
     Indication: LOWER RESPIRATORY TRACT INFECTION
     Dosage: 1000 MILLIGRAM DAILY;
     Dates: start: 20170217, end: 20170221
  11. DALTEPARIN SODIUM [Concomitant]
     Active Substance: DALTEPARIN SODIUM
     Indication: THROMBOSIS PROPHYLAXIS
     Dosage: HAD BEEN DISCONTINUED
     Route: 058
     Dates: start: 20170217, end: 20170223
  12. ONDANSETRON [Concomitant]
     Active Substance: ONDANSETRON
     Indication: VOMITING
     Route: 042
     Dates: start: 20170318, end: 20170318
  13. FUROSEMIDE. [Concomitant]
     Active Substance: FUROSEMIDE
     Indication: OEDEMA PERIPHERAL
     Dosage: 20 MILLIGRAM DAILY;
     Dates: start: 20170221, end: 20170313

REACTIONS (4)
  - Pneumonia aspiration [Fatal]
  - Haematemesis [Not Recovered/Not Resolved]
  - Gastrointestinal haemorrhage [Unknown]
  - Haematemesis [Recovered/Resolved with Sequelae]

NARRATIVE: CASE EVENT DATE: 20170318
